FAERS Safety Report 21789906 (Version 1)
Quarter: 2022Q4

REPORT INFORMATION
  Report Type: Spontaneous
  Country: CA (occurrence: CA)
  Receive Date: 20221228
  Receipt Date: 20221228
  Transmission Date: 20230113
  Serious: Yes (Other)
  Sender: FDA-Public Use
  Company Number: CA-PFIZER INC-2021455388

PATIENT
  Age: 78 Year
  Sex: Female

DRUGS (3)
  1. IBRANCE [Suspect]
     Active Substance: PALBOCICLIB
     Indication: Breast cancer metastatic
     Dosage: 100 MG, CYCLIC (21 DAYS ON, 7 DAYS OFF, DECREASE OF DOSAGE)
     Dates: start: 20200603, end: 202212
  2. IBRANCE [Suspect]
     Active Substance: PALBOCICLIB
     Dosage: 75 MG, 1X/DAY, 1 TABLET ONCE DAILY FOR 21 DAYS, FOLLOWED BY PAUSE OF 7 DAYS (28- DAY CYCLE)
  3. FASLODEX [Concomitant]
     Active Substance: FULVESTRANT
     Dosage: UNK

REACTIONS (2)
  - Pulmonary oedema [Unknown]
  - Fatigue [Unknown]

NARRATIVE: CASE EVENT DATE: 20220101
